FAERS Safety Report 23629000 (Version 3)
Quarter: 2024Q1

REPORT INFORMATION
  Report Type: Spontaneous
  Country: US (occurrence: US)
  Receive Date: 20240313
  Receipt Date: 20240318
  Transmission Date: 20240410
  Serious: No
  Sender: FDA-Public Use
  Company Number: US-JNJFOC-20240322763

PATIENT

DRUGS (2)
  1. SPRAVATO [Suspect]
     Active Substance: ESKETAMINE
     Indication: Product used for unknown indication
  2. METHAMPHETAMINE HYDROCHLORIDE [Interacting]
     Active Substance: METHAMPHETAMINE HYDROCHLORIDE

REACTIONS (1)
  - Drug interaction [Unknown]
